FAERS Safety Report 4417956-3 (Version None)
Quarter: 2004Q2

REPORT INFORMATION
  Report Type: 
  Country: None (occurrence: None)
  Receive Date: 20040622
  Receipt Date: 20040129
  Transmission Date: 20050107
  Serious: Yes (Disabling)
  Sender: FDA-Public Use
  Company Number: 357641

PATIENT
  Sex: Male
  Weight: 81.6 kg

DRUGS (2)
  1. XELODA [Suspect]
     Indication: METASTASES TO LIVER
     Dosage: 1750 MG 2 PER DAY ORAL
     Route: 048
     Dates: start: 20030615
  2. XELODA [Suspect]
     Indication: PANCREATIC CARCINOMA
     Dosage: 1750 MG 2 PER DAY ORAL
     Route: 048
     Dates: start: 20030615

REACTIONS (2)
  - PALMAR-PLANTAR ERYTHRODYSAESTHESIA SYNDROME [None]
  - STOMACH DISCOMFORT [None]
